FAERS Safety Report 18352086 (Version 1)
Quarter: 2020Q4

REPORT INFORMATION
  Report Type: Spontaneous
  Country: PL (occurrence: PL)
  Receive Date: 20201007
  Receipt Date: 20201007
  Transmission Date: 20210114
  Serious: Yes (Life-Threatening)
  Sender: FDA-Public Use
  Company Number: PL-TEVA-2020-PL-1835252

PATIENT
  Age: 78 Year
  Sex: Male

DRUGS (2)
  1. KETONAL (KETOPROFEN) [Suspect]
     Active Substance: KETOPROFEN
     Indication: OSTEOARTHRITIS
     Dosage: THERAPY START DATE : ASKU, UNIT DOSE : 50 MG
     Route: 048
     Dates: end: 20200125
  2. VIVACE (RAMIPRIL) [Suspect]
     Active Substance: RAMIPRIL
     Indication: ESSENTIAL HYPERTENSION
     Dosage: UNIT DOSE : 5 MG, THERAPY START DATE : ASKU
     Route: 048
     Dates: end: 20200125

REACTIONS (2)
  - Acute kidney injury [Recovering/Resolving]
  - Hyperkalaemia [Recovering/Resolving]
